FAERS Safety Report 13119656 (Version 3)
Quarter: 2017Q1

REPORT INFORMATION
  Report Type: Spontaneous
  Country: IT (occurrence: IT)
  Receive Date: 20170117
  Receipt Date: 20170308
  Transmission Date: 20170428
  Serious: Yes (Other)
  Sender: FDA-Public Use
  Company Number: IT-ASTRAZENECA-2017SE03832

PATIENT
  Age: 23836 Day
  Sex: Female
  Weight: 64 kg

DRUGS (1)
  1. ANASTROZOLE. [Suspect]
     Active Substance: ANASTROZOLE
     Indication: BREAST CANCER
     Dosage: GENERIC, 1 MG DAILY
     Route: 048
     Dates: start: 20120501, end: 20150709

REACTIONS (3)
  - Haematology test abnormal [Unknown]
  - Drug intolerance [Unknown]
  - Arthralgia [Recovered/Resolved]

NARRATIVE: CASE EVENT DATE: 20150709
